FAERS Safety Report 8563704-5 (Version None)
Quarter: 2012Q3

REPORT INFORMATION
  Report Type: 
  Country: None (occurrence: None)
  Receive Date: 20120803
  Receipt Date: 20120725
  Transmission Date: 20120928
  Serious: Yes (Other)
  Sender: FDA-Public Use
  Company Number: US-BIOGENIDEC-2010BI010353

PATIENT
  Sex: Female

DRUGS (2)
  1. KEPPRA [Concomitant]
     Indication: CONVULSION
  2. AVONEX [Suspect]
     Indication: MULTIPLE SCLEROSIS
     Route: 030
     Dates: start: 20090320, end: 20091016

REACTIONS (4)
  - MEMORY IMPAIRMENT [None]
  - CONVULSION [None]
  - GENERAL SYMPTOM [None]
  - DRUG INEFFECTIVE [None]
